FAERS Safety Report 7978691 (Version 7)
Quarter: 2012Q4

REPORT INFORMATION
  Report Type: Spontaneous
  Country: JP (occurrence: None)
  Receive Date: 20110518
  Receipt Date: 20120529
  Transmission Date: 20130627
  Serious: Yes (Other)
  Sender: FDA-Public Use
  Company Number: JP-2011-10742

PATIENT
  Age: 73 Year
  Sex: Female
  Weight: 52.4 kg

DRUGS (20)
  1. SAMSCA [Suspect]
     Indication: CARDIAC FAILURE CHRONIC
     Dosage: 15 MG MILLIGRAM(S), QD, ORAL, 7.5 MG MILLIGRAM(S), QD, ORA
     Route: 046
     Dates: start: 20110429, end: 20110430
  2. SAMSCA [Suspect]
     Indication: CARDIAC FAILURE CHRONIC
     Dosage: 15 MG MILLIGRAM(S), QD, ORAL, 7.5 MG MILLIGRAM(S), QD, ORA
     Route: 046
     Dates: start: 20110428, end: 20110428
  3. ACARDI (PIMOBENDAN) CAPSULE [Concomitant]
  4. MEXITIL [Concomitant]
  5. DIART (AZOSEMIDE) TABLET [Concomitant]
  6. ALFAROL (ALFACALCIDOL) CAPSULE [Concomitant]
  7. ALDACTONE [Concomitant]
  8. PREDNISOLONE (PREDNISOLONE SODIUM PHOSPHATE) TABLET [Concomitant]
  9. ZANTAC (RANITIDINE HYDROCHLORIDE) TABLET [Concomitant]
  10. AMARYL [Concomitant]
  11. WARFARIN (WARFARIN SODIUM) TABLET [Concomitant]
  12. CETAPRIL (ALACEPRIL) TABLET [Concomitant]
  13. LASIX [Concomitant]
  14. LANIRAPID (METILDIGOXIN) TABLET [Concomitant]
  15. HACHIMIJIO-GAN (HERBAL EXTRACT NOS) GRANULES [Concomitant]
  16. ALLOPURINOL [Concomitant]
  17. FOSAMAC (ALENDRONATE SODIUM) TABLET [Concomitant]
  18. REVATIO (SILDENAFIL CITRATE) TABLET [Concomitant]
  19. FERO-GRADUMET (FERROUS SULFATE) TABLET [Concomitant]
  20. KALGUT (DENOPAMINE) TABLET [Concomitant]

REACTIONS (8)
  - HEPATIC FUNCTION ABNORMAL [None]
  - BLOOD SODIUM INCREASED [None]
  - BLOOD BILIRUBIN INCREASED [None]
  - ASPARTATE AMINOTRANSFERASE INCREASED [None]
  - ALANINE AMINOTRANSFERASE INCREASED [None]
  - CONDITION AGGRAVATED [None]
  - CARDIAC FAILURE [None]
  - BLOOD POTASSIUM DECREASED [None]
